FAERS Safety Report 8108285-5 (Version None)
Quarter: 2012Q1

REPORT INFORMATION
  Report Type: 
  Country: None (occurrence: None)
  Receive Date: 20120202
  Receipt Date: 20120110
  Transmission Date: 20120608
  Serious: No
  Sender: FDA-Public Use
  Company Number: US-AMGEN-USASP2012001805

PATIENT
  Age: 55 Year
  Sex: Female

DRUGS (1)
  1. ENBREL [Suspect]
     Indication: RHEUMATOID ARTHRITIS
     Dosage: 50 MG, QWK
     Dates: start: 20100709, end: 20111201

REACTIONS (6)
  - PAIN IN EXTREMITY [None]
  - NASOPHARYNGITIS [None]
  - NASAL CONGESTION [None]
  - COUGH [None]
  - ARTHRALGIA [None]
  - OROPHARYNGEAL PAIN [None]
